FAERS Safety Report 13366933 (Version 1)
Quarter: 2017Q1

REPORT INFORMATION
  Report Type: Spontaneous
  Country: US (occurrence: US)
  Receive Date: 20170323
  Receipt Date: 20170323
  Transmission Date: 20170429
  Serious: No
  Sender: FDA-Public Use
  Company Number: None

PATIENT
  Age: 56 Year
  Sex: Female
  Weight: 61.65 kg

DRUGS (11)
  1. DOXEPIN [Suspect]
     Active Substance: DOXEPIN
     Indication: PRURITUS
     Dosage: ?          QUANTITY:1 CAPSULE(S);?
     Route: 048
     Dates: start: 20170315, end: 20170315
  2. ZYPREXA [Concomitant]
     Active Substance: OLANZAPINE
  3. PREDNISONE. [Concomitant]
     Active Substance: PREDNISONE
  4. TRADJENTA [Concomitant]
     Active Substance: LINAGLIPTIN
  5. CELOCOXIB [Concomitant]
  6. METFORMIN [Concomitant]
     Active Substance: METFORMIN HYDROCHLORIDE
  7. VITAMIN D [Concomitant]
     Active Substance: CHOLECALCIFEROL
  8. ASPIRIN. [Concomitant]
     Active Substance: ASPIRIN
  9. VENLAFAXINE [Concomitant]
     Active Substance: VENLAFAXINE HYDROCHLORIDE
  10. ATORVOSTATIN [Concomitant]
     Active Substance: ATORVASTATIN
  11. VALSARTAN. [Concomitant]
     Active Substance: VALSARTAN

REACTIONS (10)
  - Dysarthria [None]
  - Confusional state [None]
  - Tongue biting [None]
  - Clumsiness [None]
  - Labelled drug-drug interaction medication error [None]
  - Balance disorder [None]
  - Dry mouth [None]
  - Muscle spasms [None]
  - Hypersomnia [None]
  - Bruxism [None]

NARRATIVE: CASE EVENT DATE: 20170315
